FAERS Safety Report 17546726 (Version 1)
Quarter: 2020Q1

REPORT INFORMATION
  Report Type: Spontaneous
  Country: US (occurrence: US)
  Receive Date: 20200316
  Receipt Date: 20200316
  Transmission Date: 20200409
  Serious: No
  Sender: FDA-Public Use
  Company Number: US-SA-2020SA066639

PATIENT
  Sex: Female

DRUGS (1)
  1. PRALUENT [Suspect]
     Active Substance: ALIROCUMAB
     Dosage: 150 MG

REACTIONS (5)
  - Product dose omission [Unknown]
  - Pain in extremity [Unknown]
  - Bone pain [Unknown]
  - Muscle spasms [Unknown]
  - Sleep disorder [Unknown]
